FAERS Safety Report 15694972 (Version 4)
Quarter: 2019Q1

REPORT INFORMATION
  Report Type: Report from Study
  Country: US (occurrence: US)
  Receive Date: 20181206
  Receipt Date: 20190201
  Transmission Date: 20190417
  Serious: No
  Sender: FDA-Public Use
  Company Number: PHEH2018US050665

PATIENT
  Age: 33 Year
  Sex: Female

DRUGS (2)
  1. COSENTYX [Suspect]
     Active Substance: SECUKINUMAB
     Indication: PSORIASIS
     Dosage: 300 MG, Q4W (ONCE A MONTH)
     Route: 058
     Dates: start: 20181115
  2. COSENTYX [Suspect]
     Active Substance: SECUKINUMAB
     Indication: PSORIATIC ARTHROPATHY
     Dosage: 2 DF, UNK
     Route: 058
     Dates: start: 20190115

REACTIONS (3)
  - Vomiting [Unknown]
  - Nausea [Unknown]
  - Dysphagia [Unknown]

NARRATIVE: CASE EVENT DATE: 20181115
